FAERS Safety Report 9340231 (Version 2)
Quarter: 2013Q3

REPORT INFORMATION
  Report Type: Report from Study
  Country: JP (occurrence: JP)
  Receive Date: 20130610
  Receipt Date: 20130705
  Transmission Date: 20140515
  Serious: Yes (Other)
  Sender: FDA-Public Use
  Company Number: JP-SANOFI-AVENTIS-2013SA057994

PATIENT
  Sex: 0

DRUGS (3)
  1. CLEXANE [Suspect]
     Indication: THROMBOSIS PROPHYLAXIS
     Route: 058
  2. CEFAZOLIN [Concomitant]
  3. NORMAL SALINE [Concomitant]

REACTIONS (1)
  - Bacteraemia [Unknown]
